FAERS Safety Report 18544588 (Version 1)
Quarter: 2020Q4

REPORT INFORMATION
  Report Type: Spontaneous
  Country: US (occurrence: US)
  Receive Date: 20201124
  Receipt Date: 20201124
  Transmission Date: 20210114
  Serious: Yes (Hospitalization)
  Sender: FDA-Public Use
  Company Number: None

PATIENT
  Age: 30 Year
  Sex: Female

DRUGS (1)
  1. OPSUMIT [Suspect]
     Active Substance: MACITENTAN
     Indication: PULMONARY ARTERIAL HYPERTENSION
     Route: 048
     Dates: start: 20200917

REACTIONS (6)
  - Device occlusion [None]
  - Deep vein thrombosis [None]
  - Intra-abdominal haemorrhage [None]
  - Device related infection [None]
  - Device related thrombosis [None]
  - Pneumonia klebsiella [None]

NARRATIVE: CASE EVENT DATE: 20201029
